FAERS Safety Report 4897839-5 (Version None)
Quarter: 2006Q1

REPORT INFORMATION
  Report Type: 
  Country: None (occurrence: None)
  Receive Date: 20060201
  Receipt Date: 20060130
  Transmission Date: 20060701
  Serious: Yes (Other)
  Sender: FDA-Public Use
  Company Number: US-GLAXOSMITHKLINE-A0591517A

PATIENT
  Sex: Female

DRUGS (3)
  1. LAMICTAL [Suspect]
  2. SOMA [Concomitant]
  3. KLONOPIN [Concomitant]

REACTIONS (1)
  - PLATELET DISORDER [None]
